FAERS Safety Report 7423150 (Version 4)
Quarter: 2012Q4

REPORT INFORMATION
  Report Type: 
  Country: DE (occurrence: DE)
  Receive Date: 20100617
  Receipt Date: 20121114
  Transmission Date: 20130627
  Serious: Yes (Hospitalization, Other)
  Sender: FDA-Public Use
  Company Number: DE-PFIZER INC-2010071363

PATIENT
  Age: 76 Year
  Sex: Female

DRUGS (26)
  1. LYRICA [Suspect]
     Dosage: 25 mg, 1x/day
     Route: 048
     Dates: start: 20090710, end: 20090710
  2. LYRICA [Suspect]
     Dosage: 50 mg, 1x/day
     Route: 048
     Dates: start: 20090711, end: 20090712
  3. LYRICA [Suspect]
     Dosage: 75 mg, 1x/day
     Route: 048
     Dates: start: 20090713, end: 20090714
  4. LYRICA [Suspect]
     Dosage: 100 mg, 1x/day
     Route: 048
     Dates: start: 20090714, end: 20090715
  5. LYRICA [Suspect]
     Dosage: 50 mg, 1x/day
     Route: 048
     Dates: start: 20090716, end: 20090716
  6. LYRICA [Suspect]
     Dosage: 25 mg, 1x/day
     Route: 048
     Dates: start: 20090717, end: 20090719
  7. LYRICA [Suspect]
     Dosage: 50 mg, 1x/day
     Route: 048
     Dates: start: 20090720, end: 20090723
  8. LYRICA [Suspect]
     Dosage: 100 mg, 1x/day
     Route: 048
     Dates: start: 20090724
  9. AMIODARONE HCL [Suspect]
     Dosage: 200 mg, 1x/day
     Route: 048
     Dates: start: 20090707, end: 20090715
  10. AMIODARONE HCL [Suspect]
     Dosage: 100 mg, 1x/day
     Dates: start: 20090716
  11. ZYPREXA [Suspect]
     Dosage: 10 mg/day
     Route: 048
     Dates: end: 20090609
  12. ZYPREXA [Suspect]
     Dosage: 5 mg/day
     Route: 048
     Dates: start: 20090711, end: 20090713
  13. PROTHIPENDYL [Suspect]
     Dosage: 40 mg, 1x/day
     Route: 048
     Dates: start: 20090709, end: 20090709
  14. PROTHIPENDYL [Suspect]
     Dosage: 80 mg, 1x/day
     Route: 048
     Dates: start: 20090710
  15. CYMBALTA [Concomitant]
     Dosage: 90 mg/day
     Route: 048
     Dates: start: 200810, end: 20090709
  16. CYMBALTA [Concomitant]
     Dosage: 60 mg/day
     Route: 048
     Dates: start: 20090710
  17. SOLVEX [Concomitant]
     Dosage: 8 mg/day
     Route: 048
     Dates: end: 20090715
  18. ACTRAPID [Concomitant]
     Dosage: 18 IU/day
     Dates: start: 20090709
  19. LEVOTHYROXINE [Concomitant]
     Dosage: 0.05 mg/day
     Route: 048
  20. KALINOR [Concomitant]
     Dosage: 600 mg/day
     Route: 048
     Dates: end: 20090713
  21. KALINOR [Concomitant]
     Dosage: 1200mg/day
     Route: 048
     Dates: start: 20090714, end: 20090729
  22. ASS [Concomitant]
     Dosage: 100 mg/day
     Route: 048
     Dates: end: 20090715
  23. SIMVASTATIN [Concomitant]
     Dosage: 10 mg/day
     Route: 048
     Dates: end: 20090716
  24. XIPAMIDE [Concomitant]
     Dosage: 10 mg/day
     Route: 048
     Dates: end: 20090714
  25. NEXIUM [Concomitant]
     Dosage: 20 mg/day
     Route: 048
     Dates: start: 200805
  26. FUROSEMID [Concomitant]
     Dosage: 20 mg/day
     Route: 048

REACTIONS (6)
  - Electrocardiogram QT prolonged [Recovered/Resolved]
  - Fall [Recovered/Resolved]
  - Dizziness [Recovered/Resolved]
  - Syncope [Recovered/Resolved]
  - Hyponatraemia [Unknown]
  - Hypokalaemia [Unknown]
